FAERS Safety Report 7955599-5 (Version None)
Quarter: 2011Q4

REPORT INFORMATION
  Report Type: 
  Country: None (occurrence: None)
  Receive Date: 20111202
  Receipt Date: 20111128
  Transmission Date: 20120403
  Serious: Yes (Other)
  Sender: FDA-Public Use
  Company Number: SE-ASTRAZENECA-2011SE72084

PATIENT
  Sex: Female

DRUGS (3)
  1. IRESSA [Suspect]
     Indication: NEOPLASM MALIGNANT
     Route: 048
     Dates: start: 20100101
  2. IMODIUM [Concomitant]
  3. IRESSA [Suspect]
     Dosage: ONE IRESSA TABLET EVERY SECOND DAY INSTEAD OF EVERY DAY
     Route: 048
     Dates: start: 20110201

REACTIONS (11)
  - COUGH [None]
  - HAIR COLOUR CHANGES [None]
  - HYPERTRICHOSIS [None]
  - DRY SKIN [None]
  - INAPPROPRIATE SCHEDULE OF DRUG ADMINISTRATION [None]
  - INGROWING NAIL [None]
  - PRURITUS [None]
  - NAIL DISORDER [None]
  - PULMONARY EMBOLISM [None]
  - DYSPNOEA [None]
  - DIARRHOEA [None]
